FAERS Safety Report 6574427-6 (Version None)
Quarter: 2010Q1

REPORT INFORMATION
  Report Type: 
  Country: None (occurrence: None)
  Receive Date: 20100120
  Receipt Date: 20100112
  Transmission Date: 20100710
  Serious: Yes (Hospitalization)
  Sender: FDA-Public Use
  Company Number: THYM-1001279

PATIENT
  Age: 72 Year
  Sex: Male
  Weight: 98.6 kg

DRUGS (12)
  1. THYMOGLOBULINE      (ANTI-THYMOCYTE GLOBULIN (RABBIT)) POWDER FOR SOLU [Suspect]
     Indication: APLASTIC ANAEMIA
     Dosage: 3.75 MG/KG, QD, INTRAVENOUS
     Route: 042
     Dates: start: 20091008, end: 20091008
  2. THYMOGLOBULINE      (ANTI-THYMOCYTE GLOBULIN (RABBIT)) POWDER FOR SOLU [Suspect]
     Indication: APLASTIC ANAEMIA
     Dosage: 3.75 MG/KG, QD, INTRAVENOUS
     Route: 042
     Dates: start: 20091009, end: 20091012
  3. THYMOGLOBULINE (ANTI-THYMOCYTE GLOBULIN (RABBIT) POWDER FOR SOLUTION [Suspect]
  4. CYCLOSPORINE [Concomitant]
  5. CIPROFLOXACIN [Concomitant]
  6. ACYCLOVIR [Concomitant]
  7. FLUCONAZOLE [Concomitant]
  8. BENDROFLUMETHIAZIDE (BENDROFLUMETHIAZIDE) [Concomitant]
  9. VERAPAMIL [Concomitant]
  10. PREDNISOLONE [Concomitant]
  11. OMEPRAZOLE [Concomitant]
  12. POTASSIUM CHLORIDE [Concomitant]

REACTIONS (3)
  - DEVICE RELATED INFECTION [None]
  - FEBRILE NEUTROPENIA [None]
  - STAPHYLOCOCCAL BACTERAEMIA [None]
